FAERS Safety Report 10074210 (Version 1)
Quarter: 2014Q2

REPORT INFORMATION
  Report Type: Spontaneous
  Country: US (occurrence: US)
  Receive Date: 20140411
  Receipt Date: 20140411
  Transmission Date: 20141212
  Serious: No
  Sender: FDA-Public Use
  Company Number: US-SANOFI-AVENTIS-2013SA030684

PATIENT
  Age: 57 Year
  Sex: Female

DRUGS (2)
  1. ALLEGRA D [Suspect]
     Indication: HYPERSENSITIVITY
     Dosage: DOSE- 60MG/ 120MG
     Route: 065
     Dates: start: 20130316, end: 20130317
  2. ALLEGRA D [Suspect]
     Indication: COUGH
     Dosage: DOSE- 60MG/ 120MG
     Route: 065
     Dates: start: 20130316, end: 20130317

REACTIONS (5)
  - Cough [Not Recovered/Not Resolved]
  - Drug ineffective [Unknown]
  - Pruritus generalised [Not Recovered/Not Resolved]
  - Migraine [Not Recovered/Not Resolved]
  - Lacrimation increased [Not Recovered/Not Resolved]
